FAERS Safety Report 7138117-3 (Version None)
Quarter: 2010Q4

REPORT INFORMATION
  Report Type: 
  Country: None (occurrence: None)
  Receive Date: 20101206
  Receipt Date: 20101124
  Transmission Date: 20110411
  Serious: Yes (Hospitalization)
  Sender: FDA-Public Use
  Company Number: AU-JNJFOC-20091206591

PATIENT
  Sex: Male

DRUGS (6)
  1. RISPERIDONE [Suspect]
     Indication: ILL-DEFINED DISORDER
     Dosage: ALSO 0.5 MG WAS PRESCRIBED AS ADD ON AS NECESSARY (PRN)
     Route: 048
  2. OXAZEPAM [Concomitant]
  3. LASIX [Concomitant]
  4. COLECALCIFEROL [Concomitant]
  5. PARACETAMOL [Concomitant]
  6. VALIUM [Concomitant]

REACTIONS (5)
  - ACTIVITIES OF DAILY LIVING IMPAIRED [None]
  - ATRIAL FIBRILLATION [None]
  - DYSPNOEA [None]
  - LOWER RESPIRATORY TRACT INFECTION [None]
  - URINARY INCONTINENCE [None]
